FAERS Safety Report 7423239-X (Version None)
Quarter: 2011Q2

REPORT INFORMATION
  Report Type: 
  Country: None (occurrence: None)
  Receive Date: 20110419
  Receipt Date: 20091222
  Transmission Date: 20111010
  Serious: No
  Sender: FDA-Public Use
  Company Number: US-BAYER-201010106NA

PATIENT
  Sex: Female

DRUGS (1)
  1. YAZ [Suspect]
     Route: 048
     Dates: end: 20091101

REACTIONS (3)
  - FEELING HOT [None]
  - MENSTRUAL DISORDER [None]
  - HYPERHIDROSIS [None]
